FAERS Safety Report 6675272-3 (Version None)
Quarter: 2010Q2

REPORT INFORMATION
  Report Type: 
  Country: None (occurrence: None)
  Receive Date: 20100409
  Receipt Date: 20091228
  Transmission Date: 20101027
  Serious: No
  Sender: FDA-Public Use
  Company Number: A0836739A

PATIENT
  Age: 58 Year
  Sex: Female

DRUGS (6)
  1. TYKERB [Suspect]
     Indication: BREAST CANCER
     Dosage: 4TAB PER DAY
     Route: 048
     Dates: start: 20090701
  2. HERCEPTIN [Concomitant]
  3. SYNTHROID [Concomitant]
  4. PREVACID [Concomitant]
  5. NORVASC [Concomitant]
  6. LEVOTRIN [Concomitant]

REACTIONS (4)
  - COUGH [None]
  - OROPHARYNGEAL PAIN [None]
  - POSTNASAL DRIP [None]
  - RESPIRATORY TRACT CONGESTION [None]
